FAERS Safety Report 25861053 (Version 3)
Quarter: 2025Q4

REPORT INFORMATION
  Report Type: Spontaneous
  Country: US (occurrence: US)
  Receive Date: 20250929
  Receipt Date: 20251007
  Transmission Date: 20260117
  Serious: No
  Sender: SANOFI AVENTIS
  Company Number: US-SANOFI-02667604

PATIENT
  Age: 20 Year
  Sex: Female

DRUGS (3)
  1. TUBERSOL [Suspect]
     Active Substance: TUBERCULIN PURIFIED PROTEIN DERIVATIVE
     Indication: Skin test
     Dosage: 0.1 ML, 1X
     Dates: start: 20250911, end: 20250911
  2. TUBERSOL [Suspect]
     Active Substance: TUBERCULIN PURIFIED PROTEIN DERIVATIVE
     Indication: Tuberculin test
     Dosage: 0.100ML 1X
     Dates: start: 20250911
  3. TUBERSOL [Suspect]
     Active Substance: TUBERCULIN PURIFIED PROTEIN DERIVATIVE
     Indication: Immunisation
     Dates: start: 20250925

REACTIONS (3)
  - Hypersensitivity [Unknown]
  - Swelling face [Unknown]
  - Urticaria [Unknown]

NARRATIVE: CASE EVENT DATE: 20250901
